FAERS Safety Report 21984999 (Version 4)
Quarter: 2023Q1

REPORT INFORMATION
  Report Type: Spontaneous
  Country: CH (occurrence: CH)
  Receive Date: 20230213
  Receipt Date: 20230322
  Transmission Date: 20230417
  Serious: No
  Sender: FDA-Public Use
  Company Number: CH-PFIZER INC-202300058645

PATIENT
  Sex: Female

DRUGS (1)
  1. MEDROXYPROGESTERONE [Suspect]
     Active Substance: MEDROXYPROGESTERONE
     Indication: Endometriosis
     Dosage: UNK

REACTIONS (2)
  - Drug dose omission by device [Unknown]
  - Syringe issue [Unknown]
